FAERS Safety Report 5400939-4 (Version None)
Quarter: 2007Q3

REPORT INFORMATION
  Report Type: 
  Country: None (occurrence: None)
  Receive Date: 20070730
  Receipt Date: 20070718
  Transmission Date: 20080115
  Serious: No
  Sender: FDA-Public Use
  Company Number: A0653486A

PATIENT
  Age: 8 Month
  Sex: Male

DRUGS (1)
  1. ZANTAC 150 [Suspect]
     Dosage: 1.8ML TWICE PER DAY
     Route: 048
     Dates: start: 20070317

REACTIONS (3)
  - DRUG INEFFECTIVE [None]
  - INSOMNIA [None]
  - PHARMACEUTICAL PRODUCT COMPLAINT [None]
